FAERS Safety Report 25945381 (Version 2)
Quarter: 2025Q4

REPORT INFORMATION
  Report Type: Spontaneous
  Country: GB (occurrence: GB)
  Receive Date: 20251021
  Receipt Date: 20251112
  Transmission Date: 20260118
  Serious: Yes (Hospitalization)
  Sender: TEVA
  Company Number: GB-TEVA-VS-3383081

PATIENT
  Age: 46 Year
  Sex: Male

DRUGS (1)
  1. BISOPROLOL [Suspect]
     Active Substance: BISOPROLOL
     Indication: Hypertrophic cardiomyopathy
     Route: 065

REACTIONS (4)
  - Cardiac arrest [Unknown]
  - Atrioventricular block complete [Unknown]
  - Atrioventricular block second degree [Unknown]
  - Conduction disorder [Unknown]
